FAERS Safety Report 7868637-5 (Version None)
Quarter: 2011Q4

REPORT INFORMATION
  Report Type: 
  Country: None (occurrence: None)
  Receive Date: 20111028
  Receipt Date: 20101215
  Transmission Date: 20120403
  Serious: No
  Sender: FDA-Public Use
  Company Number: US-AMGEN-USASP2010009674

PATIENT
  Age: 61 Year
  Sex: Male
  Weight: 117.91 kg

DRUGS (1)
  1. ENBREL [Suspect]
     Dosage: 50 MG, UNK

REACTIONS (1)
  - NASOPHARYNGITIS [None]
